FAERS Safety Report 6521336-4 (Version None)
Quarter: 2009Q4

REPORT INFORMATION
  Report Type: 
  Country: None (occurrence: None)
  Receive Date: 20091230
  Receipt Date: 20091222
  Transmission Date: 20100525
  Serious: Yes (Other)
  Sender: FDA-Public Use
  Company Number: US-JNJFOC-20090906173

PATIENT
  Sex: Male
  Weight: 61.68 kg

DRUGS (1)
  1. DORIBAX [Suspect]
     Indication: DRUG USE FOR UNKNOWN INDICATION
     Route: 041

REACTIONS (1)
  - CONVULSION [None]
